FAERS Safety Report 5280749-1 (Version None)
Quarter: 2007Q1

REPORT INFORMATION
  Report Type: 
  Country: None (occurrence: None)
  Receive Date: 20070329
  Receipt Date: 20070320
  Transmission Date: 20070707
  Serious: Yes (Other)
  Sender: FDA-Public Use
  Company Number: US-PFIZER INC-2007001703

PATIENT
  Sex: Female
  Weight: 89.8 kg

DRUGS (1)
  1. CELEBREX [Suspect]
     Indication: BACK INJURY
     Dates: start: 19990101, end: 20020207

REACTIONS (3)
  - ARTHRITIS [None]
  - LEG AMPUTATION [None]
  - MYOCARDIAL INFARCTION [None]
